FAERS Safety Report 10239669 (Version 1)
Quarter: 2014Q2

REPORT INFORMATION
  Report Type: Spontaneous
  Country: US (occurrence: None)
  Receive Date: 20140612
  Receipt Date: 20140612
  Transmission Date: 20141212
  Serious: Yes (Other)
  Sender: FDA-Public Use
  Company Number: ABR_01686_2014

PATIENT
  Sex: Female

DRUGS (1)
  1. EDARBYCLOR [Suspect]
     Indication: HYPERTENSION
     Dosage: (DF [40 MG/12.5 MG] ORAL)
     Route: 048

REACTIONS (2)
  - Convulsion [None]
  - Blood sodium decreased [None]
